FAERS Safety Report 5450344-X (Version None)
Quarter: 2007Q3

REPORT INFORMATION
  Report Type: 
  Country: None (occurrence: None)
  Receive Date: 20070912
  Receipt Date: 20070831
  Transmission Date: 20080115
  Serious: Yes (Other)
  Sender: FDA-Public Use
  Company Number: GB-PFIZER INC-2007072974

PATIENT
  Age: 62 Year
  Sex: Female
  Weight: 57 kg

DRUGS (4)
  1. CHAMPIX [Suspect]
     Indication: SMOKING CESSATION THERAPY
     Dosage: FREQ:DAILY
     Route: 048
     Dates: start: 20070216, end: 20070404
  2. CINCHOCAINE [Concomitant]
     Indication: HAEMORRHOIDS
  3. NICOTINE [Concomitant]
     Indication: SMOKING CESSATION THERAPY
     Route: 048
     Dates: start: 20070209, end: 20070216
  4. TRAXAM [Concomitant]
     Indication: MUSCULOSKELETAL PAIN
     Route: 061

REACTIONS (4)
  - ARTHRALGIA [None]
  - BLOOD PRESSURE INCREASED [None]
  - LETHARGY [None]
  - OEDEMA PERIPHERAL [None]
